FAERS Safety Report 17522782 (Version 1)
Quarter: 2020Q1

REPORT INFORMATION
  Report Type: Spontaneous
  Country: GB (occurrence: GB)
  Receive Date: 20200310
  Receipt Date: 20200310
  Transmission Date: 20200409
  Serious: Yes (Hospitalization)
  Sender: FDA-Public Use
  Company Number: GB-BRISTOL-MYERS SQUIBB COMPANY-BMS-2020-018397

PATIENT
  Age: 71 Year
  Sex: Female
  Weight: 96.7 kg

DRUGS (5)
  1. WARFARIN SODIUM. [Suspect]
     Active Substance: WARFARIN SODIUM
     Indication: PRODUCT USED FOR UNKNOWN INDICATION
     Dosage: UNK
     Route: 065
  2. FERROUS SULFATE. [Concomitant]
     Active Substance: FERROUS SULFATE
     Indication: PRODUCT USED FOR UNKNOWN INDICATION
     Dosage: UNK
     Route: 065
  3. CALCIPOTRIOL [Concomitant]
     Active Substance: CALCIPOTRIENE
     Indication: PRODUCT USED FOR UNKNOWN INDICATION
     Dosage: UNK
     Route: 065
  4. LEVOTHYROXINE. [Concomitant]
     Active Substance: LEVOTHYROXINE
     Indication: PRODUCT USED FOR UNKNOWN INDICATION
     Dosage: UNK
     Route: 065
  5. DAKTACORT [Interacting]
     Active Substance: HYDROCORTISONE\MICONAZOLE NITRATE
     Indication: INTERTRIGO
     Dosage: 2 DOSAGE FORM, QD
     Route: 061
     Dates: start: 20200102, end: 20200116

REACTIONS (8)
  - Discoloured vomit [Unknown]
  - Malaise [Unknown]
  - Contraindicated product administered [Unknown]
  - Drug interaction [Recovering/Resolving]
  - Drug monitoring procedure not performed [Unknown]
  - Contusion [Unknown]
  - Abdominal pain [Unknown]
  - International normalised ratio increased [Unknown]

NARRATIVE: CASE EVENT DATE: 20200116
